FAERS Safety Report 20917509 (Version 1)
Quarter: 2022Q2

REPORT INFORMATION
  Report Type: Report from Study
  Country: US (occurrence: US)
  Receive Date: 20220606
  Receipt Date: 20220606
  Transmission Date: 20220721
  Serious: Yes (Other)
  Sender: FDA-Public Use
  Company Number: US-BRISTOL-MYERS SQUIBB COMPANY-2022-046218

PATIENT
  Age: 69 Year
  Sex: Male
  Weight: 99.33 kg

DRUGS (1)
  1. REVLIMID [Suspect]
     Active Substance: LENALIDOMIDE
     Indication: Plasma cell myeloma in remission
     Dosage: 28 PER BOTTLE
     Route: 048
     Dates: start: 20180223

REACTIONS (1)
  - COVID-19 [Unknown]
